FAERS Safety Report 18338794 (Version 4)
Quarter: 2020Q4

REPORT INFORMATION
  Report Type: Spontaneous
  Country: US (occurrence: US)
  Receive Date: 20201002
  Receipt Date: 20201204
  Transmission Date: 20210113
  Serious: Yes (Other)
  Sender: FDA-Public Use
  Company Number: US-LEXICON PHARMACEUTICALS, INC-20-1606-00726

PATIENT
  Age: 59 Year
  Sex: Male

DRUGS (27)
  1. COD LIVER OIL [Concomitant]
     Active Substance: COD LIVER OIL
  2. XERMELO [Suspect]
     Active Substance: TELOTRISTAT ETHYL
     Indication: CARCINOID SYNDROME
     Dates: start: 20190402
  3. CHOLESTYRAMINE. [Suspect]
     Active Substance: CHOLESTYRAMINE
     Dates: start: 202008, end: 202008
  4. FAMOTIDINE. [Concomitant]
     Active Substance: FAMOTIDINE
  5. ACETYL L-CARNITINE [Concomitant]
     Active Substance: ACETYLCARNITINE
  6. CITRUCEL [Concomitant]
     Active Substance: METHYLCELLULOSE (4000 MPA.S)
  7. CARVEDILOL. [Concomitant]
     Active Substance: CARVEDILOL
  8. DOXYCYCLINE HYCLATE. [Concomitant]
     Active Substance: DOXYCYCLINE HYCLATE
  9. GARLIC OIL [Concomitant]
     Active Substance: GARLIC OIL
  10. VITAMIN B COMPLEX [Concomitant]
     Active Substance: CYANOCOBALAMIN\DEXPANTHENOL\NIACINAMIDE\PYRIDOXINE HYDROCHLORIDE\RIBOFLAVIN 5^-PHOSPHATE SODIUM\THIAMINE HYDROCHLORIDE\VITAMIN B COMPLEX
  11. TAURINE [Concomitant]
     Active Substance: TAURINE
  12. ALOE VERA EXTRACT [Concomitant]
  13. NITROGLYCERIN. [Concomitant]
     Active Substance: NITROGLYCERIN
  14. METRONIDAZOLE. [Concomitant]
     Active Substance: METRONIDAZOLE
  15. L-ARGININE MAXIMUM STRENGTH [Concomitant]
  16. HYDROCHLOROTHIAZIDE. [Concomitant]
     Active Substance: HYDROCHLOROTHIAZIDE
  17. CLONIDINE HYDROCHLORIDE. [Concomitant]
     Active Substance: CLONIDINE HYDROCHLORIDE
  18. VITAMIN K2 [Concomitant]
     Active Substance: MENAQUINONE 6
  19. COENZYME Q10 [Concomitant]
     Active Substance: DIETARY SUPPLEMENT\UBIDECARENONE
  20. MAGNESIUM OXIDE. [Concomitant]
     Active Substance: MAGNESIUM OXIDE
  21. TURMERIC CURCUMIN [Concomitant]
     Active Substance: HERBALS\TURMERIC
  22. CULTURELLE ADULT ULTIMATE [Concomitant]
  23. PROBIOTIC [Concomitant]
     Active Substance: PROBIOTICS NOS
  24. ROSUVASTATIN CALCIUM. [Concomitant]
     Active Substance: ROSUVASTATIN CALCIUM
  25. BOHM PREBIOTIC SUPPLEMENT [Concomitant]
  26. SANDOSTATIN LAR DEPOT [Concomitant]
     Active Substance: OCTREOTIDE ACETATE
  27. OCTREOTIDE ACETATE. [Concomitant]
     Active Substance: OCTREOTIDE ACETATE

REACTIONS (9)
  - Weight decreased [Not Recovered/Not Resolved]
  - Decreased appetite [Not Recovered/Not Resolved]
  - Flushing [Unknown]
  - Neoplasm malignant [Unknown]
  - Colitis [Unknown]
  - Blood glucose increased [Unknown]
  - Liver function test increased [Unknown]
  - Diarrhoea [Unknown]
  - Blood triglycerides increased [Unknown]

NARRATIVE: CASE EVENT DATE: 2020
